FAERS Safety Report 22174105 (Version 1)
Quarter: 2023Q2

REPORT INFORMATION
  Report Type: Spontaneous
  Country: CN (occurrence: CN)
  Receive Date: 20230405
  Receipt Date: 20230405
  Transmission Date: 20230721
  Serious: Yes (Hospitalization, Other)
  Sender: FDA-Public Use
  Company Number: None

PATIENT
  Age: 57 Year
  Sex: Female
  Weight: 64 kg

DRUGS (8)
  1. CYCLOPHOSPHAMIDE [Suspect]
     Active Substance: CYCLOPHOSPHAMIDE
     Indication: Breast cancer stage II
     Dosage: 1 G, ONCE IN 21 DAYS, DILUTED WITH 50 ML OF 0.9% SODIUM CHLORIDE INJECTION
     Route: 041
     Dates: start: 20230308, end: 20230308
  2. CYCLOPHOSPHAMIDE [Suspect]
     Active Substance: CYCLOPHOSPHAMIDE
     Indication: Breast cancer female
  3. SODIUM CHLORIDE [Suspect]
     Active Substance: SODIUM CHLORIDE
     Indication: Medication dilution
     Dosage: 50 ML, ONCE IN 21 DAYS USED TO DILUTE 1 G OF CYCLOPHOSPHAMIDE INJECTION
     Route: 041
     Dates: start: 20230308, end: 20230308
  4. DEXTROSE [Suspect]
     Active Substance: DEXTROSE\DEXTROSE MONOHYDRATE
     Indication: Medication dilution
     Dosage: 500 ML, ONCE IN 21 DAYS USED TO DILUTE 120 MG OF DOCETAXEL INJECTION
     Route: 041
     Dates: start: 20230308, end: 20230308
  5. DOCETAXEL [Suspect]
     Active Substance: DOCETAXEL
     Indication: Breast cancer stage II
     Dosage: 120 MG, ONCE IN 21 DAYS, DILUTED WITH 500 ML OF 5% GLUCOSE INJECTION
     Route: 041
     Dates: start: 20230308, end: 20230308
  6. DOCETAXEL [Suspect]
     Active Substance: DOCETAXEL
     Indication: Breast cancer female
  7. MOLGRAMOSTIM [Concomitant]
     Active Substance: MOLGRAMOSTIM
     Dosage: 0.1 MG (START DATE MAR-2023)
     Route: 058
  8. XIN RUI BAI [Concomitant]
     Indication: White blood cell count decreased
     Dosage: 6 MG
     Route: 058
     Dates: start: 20230310

REACTIONS (2)
  - Myelosuppression [Recovering/Resolving]
  - Fatigue [Recovering/Resolving]

NARRATIVE: CASE EVENT DATE: 20230315
